FAERS Safety Report 11335611 (Version 2)
Quarter: 2015Q3

REPORT INFORMATION
  Report Type: Spontaneous
  Country: FR (occurrence: FR)
  Receive Date: 20150804
  Receipt Date: 20150824
  Transmission Date: 20151125
  Serious: Yes (Hospitalization)
  Sender: FDA-Public Use
  Company Number: FR-PFIZER INC-2015255938

PATIENT
  Age: 45 Year
  Sex: Male
  Weight: 66 kg

DRUGS (25)
  1. METHYLPREDNISOLONE MYLAN [Suspect]
     Active Substance: METHYLPREDNISOLONE
     Dosage: 100 MG, 1X/DAY
     Route: 037
     Dates: start: 20150214, end: 20150214
  2. KIDROLASE [Suspect]
     Active Substance: ASPARAGINASE
     Dosage: 6000  IU/M2
     Route: 042
     Dates: start: 20150223, end: 20150223
  3. ENDOXAN [Suspect]
     Active Substance: CYCLOPHOSPHAMIDE
     Dosage: 700 MG/M2 ONCE DAILY
     Dates: start: 20150214, end: 20150214
  4. VINCRISTINE HOSPIRA [Suspect]
     Active Substance: VINCRISTINE
     Dosage: 2 MG, 1X/DAY
     Route: 042
     Dates: start: 20150214, end: 20150214
  5. VINCRISTINE HOSPIRA [Suspect]
     Active Substance: VINCRISTINE
     Dosage: 2 MG, 1X/DAY
     Route: 042
     Dates: start: 20150307, end: 20150307
  6. KIDROLASE [Suspect]
     Active Substance: ASPARAGINASE
     Dosage: 6000  IU/M2
     Route: 042
     Dates: start: 20150305, end: 20150305
  7. VANCOMYCINE SANDOZ [Suspect]
     Active Substance: VANCOMYCIN
     Dosage: UNK
     Route: 042
     Dates: start: 20150301, end: 20150314
  8. DEPO-MEDROL [Suspect]
     Active Substance: METHYLPREDNISOLONE ACETATE
     Dosage: UNK
     Route: 037
     Dates: start: 20150221, end: 20150221
  9. METHOTREXATE (METHOTREXATE SODIUM) [Suspect]
     Active Substance: METHOTREXATE SODIUM
     Dosage: UNK
     Route: 037
     Dates: start: 20150214, end: 20150214
  10. CERUBIDINE [Suspect]
     Active Substance: DAUNORUBICIN HYDROCHLORIDE
     Dosage: 30 MG/M2 ONCE DAILY
     Route: 042
     Dates: start: 20150228, end: 20150301
  11. ENDOXAN [Suspect]
     Active Substance: CYCLOPHOSPHAMIDE
     Dosage: 700 MG/M2 ONCE DAILY
     Dates: start: 20150228, end: 20150228
  12. KIDROLASE [Suspect]
     Active Substance: ASPARAGINASE
     Dosage: 6000  IU/M2
     Route: 042
     Dates: start: 20150214, end: 20150214
  13. KIDROLASE [Suspect]
     Active Substance: ASPARAGINASE
     Dosage: 6000  IU/M2
     Route: 042
     Dates: start: 20150303, end: 20150303
  14. PIPERACILLINE / TAZOBACTAM MYLAN [Suspect]
     Active Substance: PIPERACILLIN SODIUM\TAZOBACTAM SODIUM
     Dosage: UNK
     Route: 042
     Dates: start: 20150225, end: 20150314
  15. METHOTREXATE (METHOTREXATE SODIUM) [Suspect]
     Active Substance: METHOTREXATE SODIUM
     Dosage: 15 MG, 1X/DAY
     Route: 037
     Dates: start: 20150213, end: 20150213
  16. CYTARABINE SANDOZ [Suspect]
     Active Substance: CYTARABINE
     Dosage: UNK
     Route: 037
     Dates: start: 20150221, end: 20150221
  17. KIDROLASE [Suspect]
     Active Substance: ASPARAGINASE
     Dosage: 6000  IU/M2
     Route: 042
     Dates: start: 20150221, end: 20150221
  18. METHOTREXATE (METHOTREXATE SODIUM) [Suspect]
     Active Substance: METHOTREXATE SODIUM
     Dosage: UNK
     Route: 037
     Dates: start: 20150221, end: 20150221
  19. CYTARABINE SANDOZ [Suspect]
     Active Substance: CYTARABINE
     Dosage: UNK
     Route: 037
     Dates: start: 20150214, end: 20150214
  20. METHYLPREDNISOLONE MYLAN [Suspect]
     Active Substance: METHYLPREDNISOLONE
     Dosage: 110 MG, DAILY
     Dates: start: 20150204, end: 20150211
  21. VINCRISTINE HOSPIRA [Suspect]
     Active Substance: VINCRISTINE
     Dosage: 2 MG, 1X/DAY
     Route: 042
     Dates: start: 20150221, end: 20150221
  22. DEPO-MEDROL [Suspect]
     Active Substance: METHYLPREDNISOLONE ACETATE
     Dosage: UNK
     Route: 037
     Dates: start: 20150214, end: 20150214
  23. METHYLPREDNISOLONE MYLAN [Suspect]
     Active Substance: METHYLPREDNISOLONE
     Dosage: 100 MG, 1X/DAY
     Route: 037
     Dates: start: 20150217, end: 20150217
  24. VINCRISTINE HOSPIRA [Suspect]
     Active Substance: VINCRISTINE
     Dosage: 2 MG, 1X/DAY
     Route: 042
     Dates: start: 20150228, end: 20150228
  25. CERUBIDINE [Suspect]
     Active Substance: DAUNORUBICIN HYDROCHLORIDE
     Dosage: 50 MG/M2 ONCE DAILY
     Route: 042
     Dates: start: 20150214, end: 20150216

REACTIONS (4)
  - Pyrexia [Unknown]
  - Product use issue [Unknown]
  - Febrile bone marrow aplasia [Recovered/Resolved]
  - Hepatocellular injury [Recovered/Resolved]

NARRATIVE: CASE EVENT DATE: 20150225
